FAERS Safety Report 7133479-5 (Version None)
Quarter: 2010Q4

REPORT INFORMATION
  Report Type: 
  Country: None (occurrence: None)
  Receive Date: 20101202
  Receipt Date: 20101130
  Transmission Date: 20110411
  Serious: Yes (Death)
  Sender: FDA-Public Use
  Company Number: BE-ABBOTT-10P-013-0686756-00

PATIENT
  Sex: Male
  Weight: 78 kg

DRUGS (2)
  1. LUCRIN DEPOT 11.25 MG [Suspect]
     Indication: PROSTATE CANCER
     Dates: start: 20071101
  2. BICALUTAMIDE [Concomitant]
     Indication: PROSTATE CANCER
     Dosage: FORM STRENGTH: 50MG
     Dates: start: 20071031

REACTIONS (3)
  - METASTASES TO BONE [None]
  - METASTASES TO LYMPH NODES [None]
  - PROSTATE CANCER [None]
